FAERS Safety Report 10363544 (Version 1)
Quarter: 2014Q3

REPORT INFORMATION
  Report Type: Spontaneous
  Country: US (occurrence: US)
  Receive Date: 20140805
  Receipt Date: 20140805
  Transmission Date: 20150326
  Serious: No
  Sender: FDA-Public Use
  Company Number: US-PFIZER INC-2014215171

PATIENT
  Age: 55 Year
  Sex: Female
  Weight: 99.77 kg

DRUGS (2)
  1. EFFEXOR XR [Suspect]
     Active Substance: VENLAFAXINE HYDROCHLORIDE
     Indication: HYPERHIDROSIS
     Dosage: 37.5 MG, 2X/DAY
     Dates: start: 2013
  2. EFFEXOR XR [Suspect]
     Active Substance: VENLAFAXINE HYDROCHLORIDE
     Dosage: 37.5 MG 2 TIMES A DAY WITH AN ADDITIONAL 75 MG DAILY

REACTIONS (2)
  - Hyperhidrosis [Unknown]
  - Drug ineffective [Unknown]

NARRATIVE: CASE EVENT DATE: 2013
